FAERS Safety Report 13267940 (Version 1)
Quarter: 2017Q1

REPORT INFORMATION
  Report Type: Spontaneous
  Country: US (occurrence: US)
  Receive Date: 20170224
  Receipt Date: 20170224
  Transmission Date: 20170428
  Serious: Yes (Life-Threatening, Hospitalization)
  Sender: FDA-Public Use
  Company Number: US-MYLANLABS-2016M1041672

PATIENT
  Sex: Female
  Weight: 96.6 kg

DRUGS (1)
  1. HYDROCHLOROTHIAZIDE CAPSULES, USP [Suspect]
     Active Substance: HYDROCHLOROTHIAZIDE
     Indication: FLUID RETENTION
     Dosage: 12.5 MG, PRN X2 DOSES
     Route: 048
     Dates: start: 20160303

REACTIONS (1)
  - Acute pulmonary oedema [Recovered/Resolved]
